FAERS Safety Report 13660497 (Version 1)
Quarter: 2017Q2

REPORT INFORMATION
  Report Type: Spontaneous
  Country: US (occurrence: US)
  Receive Date: 20170615
  Receipt Date: 20170615
  Transmission Date: 20170830
  Serious: Yes (Other)
  Sender: FDA-Public Use
  Company Number: None

PATIENT
  Age: 39 Year
  Sex: Male
  Weight: 91.8 kg

DRUGS (1)
  1. BENICAR [Suspect]
     Active Substance: OLMESARTAN MEDOXOMIL
     Indication: HYPERTENSION
     Route: 048
     Dates: start: 20170401, end: 20170430

REACTIONS (3)
  - Oedema peripheral [None]
  - Blood pressure inadequately controlled [None]
  - Fatigue [None]

NARRATIVE: CASE EVENT DATE: 20020401
